FAERS Safety Report 7283851-8 (Version None)
Quarter: 2011Q1

REPORT INFORMATION
  Report Type: 
  Country: None (occurrence: None)
  Receive Date: 20110209
  Receipt Date: 20110128
  Transmission Date: 20110831
  Serious: Yes (Other)
  Sender: FDA-Public Use
  Company Number: US-WATSON-2011-01204

PATIENT
  Age: 59 Year
  Sex: Male
  Weight: 85.714 kg

DRUGS (4)
  1. FENTANYL-100 [Suspect]
     Indication: BONE PAIN
     Dosage: 1 PATCH, Q 3 DAYS
     Route: 062
     Dates: start: 19950101, end: 19950101
  2. FENTANYL-50 [Suspect]
     Dosage: 1 PATCH, Q 3 DAYS
     Route: 062
     Dates: start: 20101001, end: 20101208
  3. FENTANYL-50 [Suspect]
     Indication: BONE PAIN
     Dosage: 1 PATCH, Q 3 DAYS
     Route: 062
     Dates: start: 20101208
  4. MORPHINE SULFATE [Concomitant]
     Indication: BREAKTHROUGH PAIN
     Dosage: 100 MG, BID
     Route: 048
     Dates: start: 20100101

REACTIONS (5)
  - LOSS OF CONSCIOUSNESS [None]
  - DIZZINESS [None]
  - NAUSEA [None]
  - DRUG INEFFECTIVE [None]
  - CONSTIPATION [None]
